FAERS Safety Report 4350303-4 (Version None)
Quarter: 2004Q2

REPORT INFORMATION
  Report Type: 
  Country: None (occurrence: None)
  Receive Date: 20040427
  Receipt Date: 20040414
  Transmission Date: 20050107
  Serious: Yes (Death, Hospitalization)
  Sender: FDA-Public Use
  Company Number: A03200401163

PATIENT
  Age: 64 Year
  Sex: Female

DRUGS (5)
  1. PLAVIX [Suspect]
     Dosage: ORAL
     Route: 048
  2. GLYBURIDE [Concomitant]
  3. PIOGLITAZONE HCL [Concomitant]
  4. METFORMIN HYDROCHLORIDE [Concomitant]
  5. PARACETAMOL [Concomitant]

REACTIONS (22)
  - ABDOMINAL PAIN UPPER [None]
  - ANAEMIA [None]
  - ANXIETY [None]
  - COMA [None]
  - CONFUSIONAL STATE [None]
  - DIABETES MELLITUS [None]
  - DYSPLASIA [None]
  - GENERAL PHYSICAL HEALTH DETERIORATION [None]
  - HEPATIC CIRRHOSIS [None]
  - MENTAL STATUS CHANGES [None]
  - MUSCLE CRAMP [None]
  - OVERDOSE [None]
  - PANCREATITIS [None]
  - PEPTIC ULCER [None]
  - RASH GENERALISED [None]
  - RESTLESSNESS [None]
  - TENDERNESS [None]
  - THROMBOTIC THROMBOCYTOPENIC PURPURA [None]
  - VERTIGO [None]
  - VICTIM OF HOMICIDE [None]
  - VIRAL INFECTION [None]
  - WEIGHT INCREASED [None]
